FAERS Safety Report 9134590 (Version 1)
Quarter: 2013Q1

REPORT INFORMATION
  Report Type: Spontaneous
  Country: US (occurrence: US)
  Receive Date: 20130304
  Receipt Date: 20130304
  Transmission Date: 20140127
  Serious: Yes (Hospitalization)
  Sender: FDA-Public Use
  Company Number: US-ELI_LILLY_AND_COMPANY-US201302008638

PATIENT
  Age: 86 Year
  Sex: Female

DRUGS (9)
  1. FORTEO [Suspect]
     Indication: OSTEOPOROSIS
     Dosage: 20 UG, QD
     Dates: start: 201108
  2. PROTONIX [Concomitant]
     Dosage: 40 MG, UNK
  3. SYNTHROID [Concomitant]
     Dosage: 112 UG, UNK
  4. ASPIRIN [Concomitant]
     Dosage: 81 MG, UNK
  5. LYRICA [Concomitant]
     Dosage: 75 MG, UNK
  6. CRESTOR [Concomitant]
     Dosage: 5 MG, UNK
  7. CYMBALTA [Concomitant]
     Dosage: 60 MG, UNK
  8. DETROL LA [Concomitant]
  9. DIOVAN HCT [Concomitant]
     Dosage: 80/12.5

REACTIONS (2)
  - Spinal fracture [Unknown]
  - Fall [Unknown]
